FAERS Safety Report 8019219-6 (Version None)
Quarter: 2012Q1

REPORT INFORMATION
  Report Type: 
  Country: None (occurrence: None)
  Receive Date: 20120103
  Receipt Date: 20111228
  Transmission Date: 20120608
  Serious: Yes (Life-Threatening, Hospitalization)
  Sender: FDA-Public Use
  Company Number: FR-BRISTOL-MYERS SQUIBB COMPANY-16323230

PATIENT
  Age: 80 Year
  Sex: Male

DRUGS (13)
  1. AMLODIPINE BESYLATE [Concomitant]
  2. AVODART [Suspect]
     Dosage: CAPSULE
     Route: 048
     Dates: end: 20111122
  3. CARVEDILOL [Concomitant]
  4. HEXAQUINE [Suspect]
     Route: 048
     Dates: start: 19980101, end: 20111122
  5. NEXEN [Suspect]
     Route: 048
     Dates: end: 20111122
  6. BEFIZAL [Suspect]
     Route: 048
     Dates: end: 20111122
  7. TRAMADOL HCL [Suspect]
     Route: 048
     Dates: end: 20111122
  8. MEDIATENSYL [Suspect]
     Route: 048
     Dates: end: 20111122
  9. ZOLPIDEM [Concomitant]
  10. GLUCOPHAGE [Suspect]
     Route: 048
     Dates: end: 20111122
  11. VALSARTAN  AND HYDROCHLOROTHIAZIDE [Suspect]
     Route: 048
     Dates: end: 20111122
  12. ACETAMINOPHEN [Concomitant]
  13. FLU-IMUNE [Suspect]
     Route: 030
     Dates: start: 20111104, end: 20111104

REACTIONS (1)
  - ANAEMIA HAEMOLYTIC AUTOIMMUNE [None]
